FAERS Safety Report 4738560-3 (Version None)
Quarter: 2005Q3

REPORT INFORMATION
  Report Type: 
  Country: None (occurrence: None)
  Receive Date: 20050809
  Receipt Date: 20050713
  Transmission Date: 20060218
  Serious: Yes (Congenital Anomaly)
  Sender: FDA-Public Use
  Company Number: 2005AC01124

PATIENT
  Sex: Female
  Weight: 3.2 kg

DRUGS (2)
  1. CANDESARTAN [Suspect]
     Indication: ESSENTIAL HYPERTENSION
     Route: 061
  2. METHYLDOPA [Suspect]
     Indication: ESSENTIAL HYPERTENSION
     Route: 064

REACTIONS (15)
  - APGAR SCORE LOW [None]
  - BETA 2 MICROGLOBULIN INCREASED [None]
  - CONGENITAL ANOMALY [None]
  - DELAYED FONTANELLE CLOSURE [None]
  - DRUG TOXICITY [None]
  - FOETAL DISORDER [None]
  - HAEMOGLOBIN DECREASED [None]
  - KIDNEY ENLARGEMENT [None]
  - KIDNEY MALFORMATION [None]
  - MATERNAL DRUGS AFFECTING FOETUS [None]
  - OLIGOHYDRAMNIOS [None]
  - PLATELET COUNT DECREASED [None]
  - PREMATURE BABY [None]
  - RENAL TUBULAR DISORDER [None]
  - SKULL MALFORMATION [None]
